FAERS Safety Report 6906417-5 (Version None)
Quarter: 2010Q3

REPORT INFORMATION
  Report Type: 
  Country: None (occurrence: None)
  Receive Date: 20100804
  Receipt Date: 20100728
  Transmission Date: 20110219
  Serious: Yes (Death)
  Sender: FDA-Public Use
  Company Number: B0602929A

PATIENT
  Sex: Female
  Weight: 68 kg

DRUGS (4)
  1. TYKERB [Suspect]
     Indication: BREAST CANCER
     Dosage: 1250MG PER DAY
     Route: 048
     Dates: start: 20090713, end: 20100609
  2. XELODA [Suspect]
     Indication: PRODUCT USED FOR UNKNOWN INDICATION
     Dosage: 600MG PER DAY
     Route: 048
     Dates: start: 20090713, end: 20100609
  3. HYSRON [Suspect]
     Indication: BREAST CANCER
     Dosage: 1200MG PER DAY
     Route: 048
     Dates: start: 20090729, end: 20090916
  4. HYSRON [Suspect]
     Dosage: 600MG PER DAY
     Route: 048
     Dates: start: 20090917, end: 20100609

REACTIONS (2)
  - HEPATIC FAILURE [None]
  - RASH [None]
